FAERS Safety Report 7788538-0 (Version None)
Quarter: 2011Q3

REPORT INFORMATION
  Report Type: 
  Country: None (occurrence: None)
  Receive Date: 20110922
  Receipt Date: 20110916
  Transmission Date: 20111222
  Serious: Yes (Other)
  Sender: FDA-Public Use
  Company Number: 2011029804

PATIENT
  Age: 64 Year
  Sex: Female
  Weight: 83.9154 kg

DRUGS (20)
  1. HIZENTRA [Suspect]
     Indication: IMMUNODEFICIENCY COMMON VARIABLE
     Dosage: (8 G 1X/WEEK SUBCUTANEOUS)
     Route: 058
     Dates: start: 20110126
  2. HIZENTRA [Suspect]
     Indication: IMMUNODEFICIENCY COMMON VARIABLE
     Dosage: (8 G 1X/WEEK SUBCUTANEOUS)
     Route: 058
     Dates: start: 20110912
  3. ZANTAC [Concomitant]
  4. DUONEB [Concomitant]
  5. KEPPRA [Concomitant]
  6. PULMICORT (BUDESONIDE) [Concomitant]
  7. LASIX [Concomitant]
  8. PLAVIX [Concomitant]
  9. VERAPAMIL (VERAPAMIL) [Concomitant]
  10. COUMADIN [Concomitant]
  11. ZOLOFT [Concomitant]
  12. SYNTHROID [Concomitant]
  13. PREDNISONE	(PREDNISONE) [Concomitant]
  14. SINGULAIR [Concomitant]
  15. PREDNISONE (PREDNISONE) [Concomitant]
  16. ALPRAZOLAM (ALPRAZOLAM) [Concomitant]
  17. OXYGEN (OXYGEN) [Concomitant]
  18. FLECAINIDE ACETATE [Concomitant]
  19. ALBUTEROL [Concomitant]
  20. PERCOCET [Concomitant]

REACTIONS (1)
  - URINARY TRACT INFECTION [None]
